FAERS Safety Report 5354423-7 (Version None)
Quarter: 2007Q2

REPORT INFORMATION
  Report Type: 
  Country: None (occurrence: None)
  Receive Date: 20070612
  Receipt Date: 20070601
  Transmission Date: 20071010
  Serious: Yes (Death, Other)
  Sender: FDA-Public Use
  Company Number: DE-SHR-DE-2007-014313

PATIENT
  Age: 75 Year
  Sex: Male

DRUGS (2)
  1. ULTRAVIST 300 [Suspect]
     Dosage: 100 ML, 1 DOSE
     Route: 042
     Dates: start: 20070424, end: 20070424
  2. PANTOZOL [Concomitant]
     Dosage: 40 MG/D, 2X/DAY

REACTIONS (6)
  - CARDIAC ARREST [None]
  - DEPRESSED LEVEL OF CONSCIOUSNESS [None]
  - FEELING ABNORMAL [None]
  - HYPERAEMIA [None]
  - HYPERHIDROSIS [None]
  - RESPIRATORY FAILURE [None]
